FAERS Safety Report 5122641-9 (Version None)
Quarter: 2006Q4

REPORT INFORMATION
  Report Type: 
  Country: None (occurrence: None)
  Receive Date: 20061004
  Receipt Date: 20060907
  Transmission Date: 20070319
  Serious: No
  Sender: FDA-Public Use
  Company Number: 36388

PATIENT
  Age: 69 Year
  Sex: Female

DRUGS (1)
  1. TRAVATAN [Suspect]
     Dates: start: 20060821, end: 20060825

REACTIONS (2)
  - ASTHMA [None]
  - CONDITION AGGRAVATED [None]
